FAERS Safety Report 8895666 (Version 1)
Quarter: 2012Q4

REPORT INFORMATION
  Report Type: Report from Study
  Country: AR (occurrence: AR)
  Receive Date: 20121108
  Receipt Date: 20121108
  Transmission Date: 20130627
  Serious: Yes (Hospitalization)
  Sender: FDA-Public Use
  Company Number: AR-009507513-1210ARG010342

PATIENT
  Age: 91 Year
  Sex: Female
  Weight: 51.8 kg

DRUGS (11)
  1. BLINDED EZETIMIBE (+) SIMVASTATIN [Suspect]
     Indication: ACUTE CORONARY SYNDROME
     Dosage: UNK
     Route: 048
     Dates: start: 20090206
  2. BLINDED PLACEBO [Suspect]
     Indication: ACUTE CORONARY SYNDROME
     Dosage: UNK
     Route: 048
     Dates: start: 20090206
  3. BLINDED POST TRIAL THERAPY [Suspect]
     Indication: ACUTE CORONARY SYNDROME
     Dosage: UNK
     Route: 048
     Dates: start: 20090206
  4. BLINDED PRE TRIAL THERAPY [Suspect]
     Indication: ACUTE CORONARY SYNDROME
     Dosage: UNK
     Route: 048
     Dates: start: 20090206
  5. BLINDED SIMVASTATIN [Suspect]
     Indication: ACUTE CORONARY SYNDROME
     Dosage: UNK
     Route: 048
     Dates: start: 20090206
  6. BLINDED THERAPY [Suspect]
     Indication: ACUTE CORONARY SYNDROME
     Dosage: UNK
     Route: 048
     Dates: start: 20090206
  7. ASPIRIN [Concomitant]
     Dosage: 100 mg, qd
     Route: 048
     Dates: start: 20040101, end: 20121019
  8. CLOPIDOGREL [Concomitant]
     Dosage: 75 mg, qd
     Route: 048
     Dates: start: 20090121, end: 20121019
  9. RANITIDINE [Concomitant]
     Dosage: 150 mg, qd
     Route: 048
     Dates: start: 20040101
  10. METFORMIN [Concomitant]
     Dosage: 1500 mg, qd
     Route: 048
     Dates: start: 20040101
  11. BISOPROLOL [Concomitant]
     Dosage: 7.5 mg, qd
     Route: 048
     Dates: start: 20120411

REACTIONS (1)
  - Bile duct stenosis [Unknown]
